FAERS Safety Report 11700375 (Version 2)
Quarter: 2015Q4

REPORT INFORMATION
  Report Type: Report from Study
  Country: JP (occurrence: JP)
  Receive Date: 20151105
  Receipt Date: 20151228
  Transmission Date: 20160304
  Serious: Yes (Hospitalization)
  Sender: FDA-Public Use
  Company Number: JP-JNJFOC-20121212614

PATIENT
  Age: 35 Year
  Sex: Male
  Weight: 78.6 kg

DRUGS (28)
  1. BEZATOL [Concomitant]
     Active Substance: BEZAFIBRATE
     Indication: HYPERLIPIDAEMIA
     Route: 048
     Dates: start: 20120608, end: 20140508
  2. BENECID [Concomitant]
     Active Substance: PROBENECID
     Indication: SYPHILIS
     Route: 048
     Dates: start: 20120119, end: 20120202
  3. BENECID [Concomitant]
     Active Substance: PROBENECID
     Indication: SCROTAL ULCER
     Route: 048
     Dates: start: 20120119, end: 20120202
  4. BENECID [Concomitant]
     Active Substance: PROBENECID
     Indication: SCROTAL ULCER
     Route: 048
     Dates: start: 20140509, end: 20140603
  5. SELBEX [Concomitant]
     Active Substance: TEPRENONE
     Indication: PROCEDURAL PAIN
     Route: 048
     Dates: start: 20140502, end: 20140527
  6. DARUNAVIR [Suspect]
     Active Substance: DARUNAVIR
     Indication: HIV INFECTION
     Route: 048
     Dates: start: 20100130
  7. PARIET [Concomitant]
     Active Substance: RABEPRAZOLE SODIUM
     Indication: ABDOMINAL PAIN UPPER
     Route: 048
     Dates: start: 20110401
  8. LIPIDIL [Concomitant]
     Active Substance: FENOFIBRATE
     Indication: HYPERLIPIDAEMIA
     Route: 048
     Dates: start: 20100401, end: 20100916
  9. LIPIDIL [Concomitant]
     Active Substance: FENOFIBRATE
     Indication: HYPERLIPIDAEMIA
     Route: 048
     Dates: start: 20100917, end: 20110310
  10. TRUVADA [Suspect]
     Active Substance: EMTRICITABINE\TENOFOVIR DISOPROXIL FUMARATE
     Indication: HIV INFECTION
     Route: 048
     Dates: start: 20090803
  11. ZETIA [Concomitant]
     Active Substance: EZETIMIBE
     Indication: HYPERLIPIDAEMIA
     Route: 065
     Dates: start: 20100917, end: 20110310
  12. VALTREX [Concomitant]
     Active Substance: VALACYCLOVIR HYDROCHLORIDE
     Indication: SCROTAL ULCER
     Route: 048
     Dates: start: 20120112, end: 20120117
  13. SAWACILLIN [Concomitant]
     Active Substance: AMOXICILLIN
     Indication: SYPHILIS
     Route: 048
     Dates: start: 20120119, end: 20120202
  14. SELBEX [Concomitant]
     Active Substance: TEPRENONE
     Indication: PROCEDURAL PAIN
     Route: 048
     Dates: start: 20130701, end: 20140318
  15. SAWACILLIN [Concomitant]
     Active Substance: AMOXICILLIN
     Indication: SCROTAL ULCER
     Route: 048
     Dates: start: 20140509, end: 20140603
  16. SELBEX [Concomitant]
     Active Substance: TEPRENONE
     Indication: PROPHYLAXIS
     Route: 048
     Dates: start: 20130701, end: 20140318
  17. NORVIR [Suspect]
     Active Substance: RITONAVIR
     Indication: HIV INFECTION
     Route: 048
     Dates: start: 20090803, end: 20110616
  18. LIPIDIL [Concomitant]
     Active Substance: FENOFIBRATE
     Indication: HYPERLIPIDAEMIA
     Route: 048
     Dates: start: 20140509
  19. BEZATOL [Concomitant]
     Active Substance: BEZAFIBRATE
     Indication: HYPERLIPIDAEMIA
     Route: 048
     Dates: start: 20110401, end: 20120607
  20. NORVIR [Suspect]
     Active Substance: RITONAVIR
     Indication: HIV INFECTION
     Route: 048
     Dates: start: 20110617
  21. REYATAZ [Concomitant]
     Active Substance: ATAZANAVIR SULFATE
     Indication: HIV INFECTION
     Route: 048
     Dates: start: 20090803, end: 20100129
  22. SAWACILLIN [Concomitant]
     Active Substance: AMOXICILLIN
     Indication: SYPHILIS
     Route: 048
     Dates: start: 20140509, end: 20140603
  23. LOXOPROFEN [Concomitant]
     Active Substance: LOXOPROFEN
     Indication: PROCEDURAL PAIN
     Route: 048
     Dates: start: 20140502, end: 20140527
  24. BENECID [Concomitant]
     Active Substance: PROBENECID
     Indication: SYPHILIS
     Route: 048
     Dates: start: 20140509, end: 20140603
  25. SELBEX [Concomitant]
     Active Substance: TEPRENONE
     Indication: PROPHYLAXIS
     Route: 048
     Dates: start: 20140502, end: 20140527
  26. GENTACIN [Concomitant]
     Active Substance: GENTAMICIN SULFATE
     Indication: SCROTAL ULCER
     Route: 061
     Dates: start: 20120112, end: 20120202
  27. SAWACILLIN [Concomitant]
     Active Substance: AMOXICILLIN
     Indication: SCROTAL ULCER
     Route: 048
     Dates: start: 20120119, end: 20120202
  28. SEFMAZON [Concomitant]
     Active Substance: CEFAZOLIN
     Indication: INFECTION PROPHYLAXIS
     Route: 065
     Dates: start: 20140501, end: 20140503

REACTIONS (9)
  - Road traffic accident [Recovering/Resolving]
  - Vitreous floaters [Recovering/Resolving]
  - Blood uric acid increased [Recovered/Resolved]
  - Gastroenteritis [Recovering/Resolving]
  - Genital rash [Recovering/Resolving]
  - Cholelithiasis [Not Recovered/Not Resolved]
  - Scrotal ulcer [Recovered/Resolved]
  - Injury [Recovering/Resolving]
  - Blood uric acid increased [Recovered/Resolved]

NARRATIVE: CASE EVENT DATE: 20100917
